FAERS Safety Report 6252829-5 (Version None)
Quarter: 2009Q2

REPORT INFORMATION
  Report Type: 
  Country: None (occurrence: None)
  Receive Date: 20090629
  Receipt Date: 20081217
  Transmission Date: 20091009
  Serious: Yes (Hospitalization, Other)
  Sender: FDA-Public Use
  Company Number: 2008AP003615

PATIENT
  Age: 56 Year
  Sex: Male

DRUGS (2)
  1. CIPROFLOXACIN [Suspect]
     Indication: UPPER RESPIRATORY TRACT INFECTION
     Dosage: 400 MG; BID;
  2. METHADONE HCL [Suspect]
     Dosage: 80 MG; QD; PO, 120 MG; PO
     Route: 048

REACTIONS (6)
  - DRUG INTERACTION [None]
  - HYPOKALAEMIA [None]
  - SELF-MEDICATION [None]
  - SINUS BRADYCARDIA [None]
  - SYNCOPE [None]
  - TORSADE DE POINTES [None]
